FAERS Safety Report 18342073 (Version 1)
Quarter: 2020Q4

REPORT INFORMATION
  Report Type: Spontaneous
  Country: US (occurrence: US)
  Receive Date: 20201005
  Receipt Date: 20201005
  Transmission Date: 20210113
  Serious: No
  Sender: FDA-Public Use
  Company Number: US-GLENMARK PHARMACEUTICALS-2020GMK049072

PATIENT

DRUGS (6)
  1. TRIAMTERENE HCTZ [Concomitant]
     Active Substance: HYDROCHLOROTHIAZIDE\TRIAMTERENE
     Indication: HYPERTENSION
     Dosage: UNK
     Route: 065
  2. LISINOPRIL. [Concomitant]
     Active Substance: LISINOPRIL
     Indication: HYPERTENSION
     Dosage: UNK
     Route: 065
  3. OXYCODONE AND ACETAMINOPHEN [Concomitant]
     Active Substance: ACETAMINOPHEN\OXYCODONE HYDROCHLORIDE
     Indication: PAIN
     Dosage: UNK
     Route: 065
  4. GABAPENTIN TABLETS USP, 800 MG [Suspect]
     Active Substance: GABAPENTIN
     Indication: BACK PAIN
     Dosage: 800 MILLIGRAM, TID
     Route: 048
     Dates: start: 201704
  5. GABAPENTIN TABLETS USP, 800 MG [Suspect]
     Active Substance: GABAPENTIN
     Dosage: 1200 MILLIGRAM, TID (DOSE INCREASED TO 1 AND HALF TABLETS)
     Route: 048
     Dates: start: 202007
  6. AMLODIPINE BESYLATE. [Concomitant]
     Active Substance: AMLODIPINE BESYLATE
     Indication: HYPERTENSION
     Dosage: UNK
     Route: 065

REACTIONS (1)
  - Drug ineffective for unapproved indication [Unknown]
